FAERS Safety Report 9351766 (Version 1)
Quarter: 2013Q2

REPORT INFORMATION
  Report Type: Spontaneous
  Country: US (occurrence: US)
  Receive Date: 20130617
  Receipt Date: 20130617
  Transmission Date: 20140414
  Serious: Yes (Other)
  Sender: FDA-Public Use
  Company Number: US-BIOGENIDEC-2013BI051272

PATIENT
  Age: 60 Year
  Sex: Female

DRUGS (2)
  1. AVONEX [Suspect]
     Indication: MULTIPLE SCLEROSIS
     Route: 030
     Dates: start: 20090306
  2. AVONEX [Suspect]
     Indication: MULTIPLE SCLEROSIS
     Route: 030
     Dates: start: 20100201

REACTIONS (4)
  - Thrombosis [Unknown]
  - Fall [Recovered/Resolved]
  - Back injury [Not Recovered/Not Resolved]
  - Mobility decreased [Not Recovered/Not Resolved]
